FAERS Safety Report 21229766 (Version 1)
Quarter: 2022Q3

REPORT INFORMATION
  Report Type: Spontaneous
  Country: AU (occurrence: AU)
  Receive Date: 20220818
  Receipt Date: 20220818
  Transmission Date: 20221027
  Serious: Yes (Other)
  Sender: FDA-Public Use
  Company Number: AU-MYLANLABS-2022M1087080

PATIENT
  Age: 55 Year
  Sex: Female

DRUGS (1)
  1. TRASTUZUMAB [Suspect]
     Active Substance: TRASTUZUMAB
     Indication: Invasive ductal breast carcinoma
     Dosage: UNK
     Route: 065

REACTIONS (5)
  - Toxicity to various agents [Recovering/Resolving]
  - Myocarditis [Recovering/Resolving]
  - Myopericarditis [Recovering/Resolving]
  - Pericardial effusion [Recovering/Resolving]
  - Atrial fibrillation [Recovering/Resolving]
